FAERS Safety Report 4431782-0 (Version None)
Quarter: 2004Q3

REPORT INFORMATION
  Report Type: 
  Country: None (occurrence: None)
  Receive Date: 20040825
  Receipt Date: 20040816
  Transmission Date: 20050211
  Serious: Yes (Hospitalization)
  Sender: FDA-Public Use
  Company Number: FR-JNJFOC-20040805064

PATIENT
  Age: 39 Year
  Sex: Female

DRUGS (12)
  1. TOPALGIC [Suspect]
     Indication: DRUG USE FOR UNKNOWN INDICATION
     Route: 049
  2. BACTRIM [Suspect]
     Route: 049
  3. BACTRIM [Suspect]
     Indication: TOXOPLASMOSIS
     Route: 049
  4. CYMEVAN [Suspect]
     Indication: CYTOMEGALOVIRUS INFECTION
     Route: 049
  5. MYAMBUTOL [Concomitant]
     Indication: TUBERCULOSIS
     Route: 049
  6. RIFADIN [Concomitant]
     Indication: TUBERCULOSIS
     Route: 042
  7. ZECLAR [Concomitant]
     Route: 049
  8. IDARAC [Concomitant]
     Route: 049
  9. LEXOMIL [Concomitant]
     Route: 049
  10. CETORNAN [Concomitant]
     Route: 049
  11. STILNOX [Concomitant]
     Route: 049
  12. DIFFU K [Concomitant]
     Route: 049

REACTIONS (2)
  - DRUG INTERACTION [None]
  - NEUTROPENIA [None]
